FAERS Safety Report 12233285 (Version 6)
Quarter: 2017Q2

REPORT INFORMATION
  Report Type: Report from Study
  Country: CA (occurrence: CA)
  Receive Date: 20160404
  Receipt Date: 20170502
  Transmission Date: 20170830
  Serious: Yes (Other)
  Sender: FDA-Public Use
  Company Number: CA-ROCHE-1387581

PATIENT
  Sex: Female
  Weight: 21.79 kg

DRUGS (11)
  1. RITUXAN [Suspect]
     Active Substance: RITUXIMAB
     Indication: OCULAR PEMPHIGOID
     Dosage: DATE OF MOST RECENT DOSE OF RITUXIMAB: 22/MAY/2013?DATE OF MOST RECENT DOSE OF RITUXIMAB: 26/MAY/201
     Route: 042
     Dates: start: 20101115
  2. ACETAMINOPHEN. [Concomitant]
     Active Substance: ACETAMINOPHEN
     Indication: PREMEDICATION
     Route: 048
     Dates: start: 20101115
  3. METHYLPREDNISOLONE. [Concomitant]
     Active Substance: METHYLPREDNISOLONE
     Indication: PREMEDICATION
     Route: 042
     Dates: start: 20101115
  4. FLUOXETINE [Concomitant]
     Active Substance: FLUOXETINE HYDROCHLORIDE
  5. MAXIDEX [Concomitant]
     Active Substance: DEXAMETHASONE
  6. LIPITOR [Concomitant]
     Active Substance: ATORVASTATIN CALCIUM
  7. ASA [Concomitant]
     Active Substance: ASPIRIN
  8. FOSAVANCE [Concomitant]
     Active Substance: ALENDRONATE SODIUM\CHOLECALCIFEROL
  9. CANDESARTAN. [Concomitant]
     Active Substance: CANDESARTAN
  10. XALATAN [Concomitant]
     Active Substance: LATANOPROST
  11. DIPHENHYDRAMINE HYDROCHLORIDE. [Concomitant]
     Active Substance: DIPHENHYDRAMINE HYDROCHLORIDE
     Indication: PREMEDICATION
     Route: 048
     Dates: start: 20101115

REACTIONS (7)
  - Hypophagia [Unknown]
  - Pneumonia [Recovered/Resolved]
  - Weight decreased [Unknown]
  - Ocular pemphigoid [Not Recovered/Not Resolved]
  - Lung neoplasm malignant [Unknown]
  - Visual impairment [Recovering/Resolving]
  - Off label use [Unknown]

NARRATIVE: CASE EVENT DATE: 2014
